FAERS Safety Report 10909031 (Version 1)
Quarter: 2015Q1

REPORT INFORMATION
  Report Type: Spontaneous
  Country: US (occurrence: US)
  Receive Date: 20150312
  Receipt Date: 20150312
  Transmission Date: 20150721
  Serious: No
  Sender: FDA-Public Use
  Company Number: US-SA-2014SA033416

PATIENT
  Age: 74 Year
  Sex: Male
  Weight: 79.37 kg

DRUGS (1)
  1. NASACORT ALLERGY 24HR [Suspect]
     Active Substance: TRIAMCINOLONE ACETONIDE
     Indication: RHINORRHOEA
     Dosage: TAKEN FROM: SEVERAL DAYS
     Route: 065

REACTIONS (4)
  - Blood glucose increased [Unknown]
  - Mobility decreased [Unknown]
  - Blood glucose decreased [Unknown]
  - Hot flush [Unknown]
